FAERS Safety Report 7471817-4 (Version None)
Quarter: 2011Q2

REPORT INFORMATION
  Report Type: 
  Country: None (occurrence: None)
  Receive Date: 20110511
  Receipt Date: 20100511
  Transmission Date: 20111010
  Serious: No
  Sender: FDA-Public Use
  Company Number: A0860875A

PATIENT
  Sex: Male

DRUGS (6)
  1. TYKERB [Suspect]
     Dosage: 1000MG PER DAY
     Route: 048
     Dates: start: 20100401
  2. CITALOPRAM HYDROBROMIDE [Concomitant]
  3. PEPCID AC [Concomitant]
  4. VICODIN [Concomitant]
  5. LEVOTHYROXINE SODIUM [Concomitant]
  6. HERCEPTIN [Concomitant]

REACTIONS (3)
  - NAUSEA [None]
  - ADVERSE DRUG REACTION [None]
  - INSOMNIA [None]
